FAERS Safety Report 11246490 (Version 1)
Quarter: 2015Q3

REPORT INFORMATION
  Report Type: Report from Study
  Country: FR (occurrence: FR)
  Receive Date: 20150708
  Receipt Date: 20150708
  Transmission Date: 20151125
  Serious: Yes (Hospitalization)
  Sender: FDA-Public Use
  Company Number: FR-ROCHE-1602025

PATIENT
  Sex: Female
  Weight: 88 kg

DRUGS (38)
  1. TOCILIZUMAB [Suspect]
     Active Substance: TOCILIZUMAB
     Dosage: 7.82 MG/KG
     Route: 042
     Dates: start: 20131127
  2. KENZEN [Concomitant]
     Active Substance: CANDESARTAN
     Route: 065
  3. INNOVAIR [Concomitant]
     Active Substance: BECLOMETHASONE DIPROPIONATE\FORMOTEROL
  4. TOCILIZUMAB [Suspect]
     Active Substance: TOCILIZUMAB
     Indication: RHEUMATOID ARTHRITIS
     Dosage: 7.91 MG/KG
     Route: 042
     Dates: start: 20120829
  5. TOCILIZUMAB [Suspect]
     Active Substance: TOCILIZUMAB
     Dosage: 8.28 MG/KG
     Route: 042
     Dates: start: 20121121
  6. TOCILIZUMAB [Suspect]
     Active Substance: TOCILIZUMAB
     Dosage: 7.82 MG/KG
     Route: 042
     Dates: start: 20131002
  7. TOCILIZUMAB [Suspect]
     Active Substance: TOCILIZUMAB
     Dosage: 7.82 MG/KG
     Route: 042
     Dates: start: 20131030
  8. TOCILIZUMAB [Suspect]
     Active Substance: TOCILIZUMAB
     Dosage: 7.64 MG/KG
     Route: 042
     Dates: start: 20150204
  9. IDEOS [Concomitant]
     Active Substance: CALCIUM CARBONATE\CHOLECALCIFEROL
  10. SULFARLEM [Concomitant]
     Active Substance: ANETHOLTRITHION
     Route: 065
  11. ARTELAC (FRANCE) [Concomitant]
  12. TOCILIZUMAB [Suspect]
     Active Substance: TOCILIZUMAB
     Dosage: 8.28 MG/KG
     Route: 042
     Dates: start: 20121024
  13. TOCILIZUMAB [Suspect]
     Active Substance: TOCILIZUMAB
     Dosage: 8 MG/KG
     Route: 042
     Dates: start: 20121219
  14. TOCILIZUMAB [Suspect]
     Active Substance: TOCILIZUMAB
     Dosage: 8.27 MG/KG
     Route: 042
     Dates: start: 20130213
  15. TOCILIZUMAB [Suspect]
     Active Substance: TOCILIZUMAB
     Dosage: 8.32 MG/KG
     Route: 042
     Dates: start: 20130515
  16. TOCILIZUMAB [Suspect]
     Active Substance: TOCILIZUMAB
     Dosage: 7.73 MG/KG
     Route: 042
     Dates: start: 20140514
  17. TOCILIZUMAB [Suspect]
     Active Substance: TOCILIZUMAB
     Dosage: 7.65 MG/KG
     Route: 042
     Dates: start: 20141210
  18. TRAMADOL. [Concomitant]
     Active Substance: TRAMADOL
     Dosage: WHEN NEEDED
     Route: 065
  19. TOCILIZUMAB [Suspect]
     Active Substance: TOCILIZUMAB
     Dosage: 7.73 MG/KG
     Route: 042
     Dates: start: 20141001
  20. TOCILIZUMAB [Suspect]
     Active Substance: TOCILIZUMAB
     Dosage: 7.64 MG/KG
     Route: 042
     Dates: start: 20150107
  21. CELEBREX [Concomitant]
     Active Substance: CELECOXIB
     Route: 065
  22. ARAVA [Concomitant]
     Active Substance: LEFLUNOMIDE
  23. TOCILIZUMAB [Suspect]
     Active Substance: TOCILIZUMAB
     Dosage: 7.91 MG/KG
     Route: 042
     Dates: start: 20120925
  24. TOCILIZUMAB [Suspect]
     Active Substance: TOCILIZUMAB
     Dosage: 8.27 MG/KG
     Route: 042
     Dates: start: 20130313
  25. TOCILIZUMAB [Suspect]
     Active Substance: TOCILIZUMAB
     Dosage: 7.84 MG/KG
     Route: 042
     Dates: start: 20140219
  26. TOCILIZUMAB [Suspect]
     Active Substance: TOCILIZUMAB
     Dosage: 7.73 MG/KG
     Route: 042
     Dates: start: 20140416
  27. TOCILIZUMAB [Suspect]
     Active Substance: TOCILIZUMAB
     Dosage: 8.26 MG/KG
     Route: 042
     Dates: start: 20130116
  28. TOCILIZUMAB [Suspect]
     Active Substance: TOCILIZUMAB
     Dosage: 3.96 MG/KG,
     Route: 042
     Dates: start: 20130710
  29. TOCILIZUMAB [Suspect]
     Active Substance: TOCILIZUMAB
     Dosage: 7.73 MG/KG
     Route: 042
     Dates: start: 20140319
  30. TOCILIZUMAB [Suspect]
     Active Substance: TOCILIZUMAB
     Dosage: 7.73 MG/KG
     Route: 042
     Dates: start: 20140709
  31. TOCILIZUMAB [Suspect]
     Active Substance: TOCILIZUMAB
     Dosage: 7.65 MG/KG
     Route: 042
     Dates: start: 20141114
  32. CRESTOR [Concomitant]
     Active Substance: ROSUVASTATIN CALCIUM
     Route: 065
  33. TOCILIZUMAB [Suspect]
     Active Substance: TOCILIZUMAB
     Dosage: 8.24 MG/KG.
     Route: 042
     Dates: start: 20130410
  34. TOCILIZUMAB [Suspect]
     Active Substance: TOCILIZUMAB
     Dosage: 7.82 MG/KG
     Route: 042
     Dates: start: 20131223
  35. TOCILIZUMAB [Suspect]
     Active Substance: TOCILIZUMAB
     Dosage: 7.78 MG/KG
     Route: 042
     Dates: start: 20140122
  36. TOCILIZUMAB [Suspect]
     Active Substance: TOCILIZUMAB
     Dosage: 7.65 MG/KG,
     Route: 042
     Dates: start: 20140806
  37. TOCILIZUMAB [Suspect]
     Active Substance: TOCILIZUMAB
     Dosage: 7.74 MG/KG
     Route: 042
     Dates: start: 20140903
  38. INIPOMP [Concomitant]
     Active Substance: PANTOPRAZOLE SODIUM
     Route: 065

REACTIONS (4)
  - Biliary colic [Recovered/Resolved with Sequelae]
  - Hepatomegaly [Unknown]
  - Cholelithiasis [Recovered/Resolved with Sequelae]
  - Renal cyst [Unknown]

NARRATIVE: CASE EVENT DATE: 201307
